FAERS Safety Report 18712736 (Version 1)
Quarter: 2021Q1

REPORT INFORMATION
  Report Type: Spontaneous
  Country: US (occurrence: US)
  Receive Date: 20210107
  Receipt Date: 20210107
  Transmission Date: 20210419
  Serious: Yes (Disabling, Other)
  Sender: FDA-Public Use
  Company Number: None

PATIENT
  Age: 38 Year
  Sex: Female
  Weight: 72.9 kg

DRUGS (2)
  1. NATURE?THROID [Suspect]
     Active Substance: THYROID, PORCINE
     Indication: THYROID DISORDER
     Route: 048
     Dates: start: 20190917, end: 20201001
  2. WP THYROID [Suspect]
     Active Substance: THYROID, PORCINE

REACTIONS (2)
  - Angina pectoris [None]
  - Weight increased [None]

NARRATIVE: CASE EVENT DATE: 20200210
